FAERS Safety Report 9188392 (Version 1)
Quarter: 2012Q4

REPORT INFORMATION
  Report Type: 
  Country: US (occurrence: US)
  Receive Date: 20121205
  Receipt Date: 20121205
  Transmission Date: 20130627
  Serious: Yes (Death)
  Sender: FDA-Public Use
  Company Number: PHEH2012US023807

PATIENT
  Sex: Male

DRUGS (6)
  1. AFINITOR [Suspect]
     Dosage: 10 mg, daily
     Route: 048
  2. ASPIRIN [Concomitant]
     Dosage: 81 mg, UNK
  3. ATENOLOL [Concomitant]
     Dosage: 25 mg, UNK
  4. DOXYCYCLINE [Concomitant]
     Dosage: 20 mg, UNK
  5. OMEPRAZOLE [Concomitant]
     Dosage: 20 mg, UNK
  6. SANDOSTATIN LAR [Concomitant]
     Dosage: 20 mg, UNK

REACTIONS (1)
  - Death [Fatal]
